FAERS Safety Report 9920898 (Version 1)
Quarter: 2014Q1

REPORT INFORMATION
  Report Type: Spontaneous
  Country: NL (occurrence: NL)
  Receive Date: 20140225
  Receipt Date: 20140225
  Transmission Date: 20141002
  Serious: Yes (Hospitalization)
  Sender: FDA-Public Use
  Company Number: NL-AMGEN-NLDSP2014012241

PATIENT
  Age: 56 Year
  Sex: Female

DRUGS (2)
  1. XGEVA [Suspect]
     Indication: PRODUCT USED FOR UNKNOWN INDICATION
     Dosage: 120 UNK, Q4WK
     Route: 058
     Dates: start: 20120522
  2. CALCICHEW [Concomitant]
     Dosage: UNK

REACTIONS (1)
  - Hospitalisation [Unknown]
